FAERS Safety Report 12799495 (Version 9)
Quarter: 2017Q1

REPORT INFORMATION
  Report Type: Spontaneous
  Country: BR (occurrence: BR)
  Receive Date: 20160930
  Receipt Date: 20170103
  Transmission Date: 20170428
  Serious: Yes (Hospitalization, Other)
  Sender: FDA-Public Use
  Company Number: BR-BIOMARINAP-BR-2016-111151

PATIENT
  Age: 19 Year
  Sex: Female
  Weight: 40 kg

DRUGS (3)
  1. OXCARBAZEPINE. [Concomitant]
     Active Substance: OXCARBAZEPINE
     Indication: PRODUCT USED FOR UNKNOWN INDICATION
  2. CLOBAZAM [Concomitant]
     Active Substance: CLOBAZAM
     Indication: PRODUCT USED FOR UNKNOWN INDICATION
     Dosage: UNK
  3. NAGLAZYME [Suspect]
     Active Substance: GALSULFASE
     Indication: MUCOPOLYSACCHARIDOSIS VI
     Dosage: 40 MG, UNK
     Route: 042
     Dates: start: 20070226

REACTIONS (12)
  - Seizure [Recovering/Resolving]
  - Cough [Recovering/Resolving]
  - Blood pressure abnormal [Recovering/Resolving]
  - Rash macular [Recovering/Resolving]
  - Sinusitis [Recovering/Resolving]
  - Urticaria [Unknown]
  - Influenza [Recovering/Resolving]
  - Hypersensitivity [Recovering/Resolving]
  - Pyrexia [Recovering/Resolving]
  - Increased bronchial secretion [Recovering/Resolving]
  - Pulmonary congestion [Not Recovered/Not Resolved]
  - Device related infection [Recovered/Resolved]

NARRATIVE: CASE EVENT DATE: 20160912
